FAERS Safety Report 5315671-5 (Version None)
Quarter: 2007Q2

REPORT INFORMATION
  Report Type: 
  Country: None (occurrence: None)
  Receive Date: 20070503
  Receipt Date: 20070424
  Transmission Date: 20071010
  Serious: Yes (Hospitalization, Disabling)
  Sender: FDA-Public Use
  Company Number: SE-JNJFOC-20030906144

PATIENT
  Age: 50 Year
  Sex: Female

DRUGS (5)
  1. REMICADE [Suspect]
     Indication: RHEUMATOID ARTHRITIS
     Dosage: 200-300MG GIVEN
     Route: 042
  2. LEVAXIN [Concomitant]
  3. METHOTREXATE [Concomitant]
  4. ALVEDON [Concomitant]
  5. OMEGA 3 [Concomitant]

REACTIONS (7)
  - CEREBROVASCULAR ACCIDENT [None]
  - HEMIPARESIS [None]
  - HYPERSENSITIVITY [None]
  - INFUSION RELATED REACTION [None]
  - LARYNGEAL OEDEMA [None]
  - SERUM SICKNESS [None]
  - VESTIBULAR DISORDER [None]
